FAERS Safety Report 8959325 (Version 2)
Quarter: 2013Q3

REPORT INFORMATION
  Report Type: Report from Study
  Country: US (occurrence: US)
  Receive Date: 20121211
  Receipt Date: 20130715
  Transmission Date: 20140515
  Serious: Yes (Other)
  Sender: FDA-Public Use
  Company Number: US-ABBOTT-12P-163-1018350-00

PATIENT
  Age: 31 Year
  Sex: Female

DRUGS (2)
  1. KALETRA [Suspect]
     Indication: ANTIRETROVIRAL THERAPY
     Dosage: 4 TABLETS DAILY
     Route: 048
     Dates: start: 20120119
  2. COMBIVIR [Suspect]
     Indication: ANTIRETROVIRAL THERAPY
     Dosage: 2 TABLETS DAILY
     Route: 048
     Dates: start: 20120119

REACTIONS (1)
  - Abortion spontaneous [Unknown]
